FAERS Safety Report 9791011 (Version 1)
Quarter: 2013Q4

REPORT INFORMATION
  Report Type: Report from Study
  Country: US (occurrence: US)
  Receive Date: 20131231
  Receipt Date: 20131231
  Transmission Date: 20140711
  Serious: Yes (Hospitalization)
  Sender: FDA-Public Use
  Company Number: US-IPSEN BIOPHARMACEUTICALS, INC.-2013-5959

PATIENT
  Age: 85 Year
  Sex: Female
  Weight: 71 kg

DRUGS (10)
  1. SOMATULINE DEPOT INJECTION (120MG) [Suspect]
     Indication: ACROMEGALY
     Dosage: 90 MG
     Route: 058
     Dates: start: 20120613, end: 20121206
  2. SOMATULINE DEPOT INJECTION (120MG) [Suspect]
     Route: 058
     Dates: start: 20121206, end: 20131009
  3. SOMATULINE DEPOT INJECTION (120MG) [Suspect]
     Route: 058
     Dates: start: 20131009, end: 20131030
  4. EXFORGE 5/160 [Concomitant]
     Indication: PRODUCT USED FOR UNKNOWN INDICATION
     Dosage: NOT REPORTED
     Route: 065
  5. METOPROLOL [Concomitant]
     Indication: PRODUCT USED FOR UNKNOWN INDICATION
     Dosage: NOT REPORTED
     Route: 065
  6. ASPIRIN [Concomitant]
     Indication: PRODUCT USED FOR UNKNOWN INDICATION
     Dosage: NOT REPORTED
     Route: 065
  7. SIMVASTATIN [Concomitant]
     Indication: PRODUCT USED FOR UNKNOWN INDICATION
     Route: 065
  8. SPIRONOLACTONE [Concomitant]
     Indication: PRODUCT USED FOR UNKNOWN INDICATION
     Dosage: NOT REPORTED
     Route: 065
  9. TRIBENZOR [Concomitant]
     Indication: PRODUCT USED FOR UNKNOWN INDICATION
     Route: 065
  10. NITROFURANTOIN [Concomitant]
     Indication: URINARY TRACT INFECTION
     Dosage: NOT REPORTED
     Route: 065

REACTIONS (2)
  - Enterococcal infection [Not Recovered/Not Resolved]
  - Enterococcal sepsis [Not Recovered/Not Resolved]
